FAERS Safety Report 4627808-1 (Version None)
Quarter: 2005Q2

REPORT INFORMATION
  Report Type: 
  Country: None (occurrence: None)
  Receive Date: 20050401
  Receipt Date: 20050322
  Transmission Date: 20051028
  Serious: Yes (Other)
  Sender: FDA-Public Use
  Company Number: 2005048151

PATIENT
  Sex: Female

DRUGS (3)
  1. DEPO-PROVERA [Suspect]
     Indication: CONTRACEPTION
     Dosage: 150 MG (150 MG, SINGLE INTERVAL: TRIMESTRAL)
     Dates: start: 20040626
  2. ANTIBIOTICS (ANTIBIOTICS) [Concomitant]
  3. ANALGESICS (ANALGESICS) [Concomitant]

REACTIONS (2)
  - APPENDICITIS PERFORATED [None]
  - MENSTRUAL DISORDER [None]
